FAERS Safety Report 8362245-8 (Version None)
Quarter: 2012Q2

REPORT INFORMATION
  Report Type: 
  Country: None (occurrence: None)
  Receive Date: 20120515
  Receipt Date: 20120509
  Transmission Date: 20120825
  Serious: Yes (Hospitalization, Other)
  Sender: FDA-Public Use
  Company Number: US-BAYER-2011-092471

PATIENT
  Age: 19 Year
  Sex: Female
  Weight: 65.76 kg

DRUGS (5)
  1. IBUPROFEN [Concomitant]
     Indication: DYSMENORRHOEA
     Dosage: 600 MG, TIMES A DAY AS NEEDED
  2. FLUOXETINE [Concomitant]
     Dosage: 10 MG, DAILY
  3. DIAZEPAM [Concomitant]
  4. IBUPROFEN [Concomitant]
  5. YAZ [Suspect]
     Indication: CONTRACEPTION
     Dosage: UNK
     Dates: start: 20070101, end: 20100101

REACTIONS (13)
  - DYSPEPSIA [None]
  - MALAISE [None]
  - WEIGHT INCREASED [None]
  - INJURY [None]
  - ANXIETY [None]
  - ANHEDONIA [None]
  - CHOLECYSTITIS ACUTE [None]
  - GALLBLADDER DISORDER [None]
  - RECTAL HAEMORRHAGE [None]
  - EMOTIONAL DISTRESS [None]
  - PAIN [None]
  - GENERAL PHYSICAL HEALTH DETERIORATION [None]
  - INFECTION [None]
